FAERS Safety Report 8534149-9 (Version None)
Quarter: 2012Q3

REPORT INFORMATION
  Report Type: 
  Country: None (occurrence: None)
  Receive Date: 20120724
  Receipt Date: 20120709
  Transmission Date: 20120928
  Serious: Yes (Other)
  Sender: FDA-Public Use
  Company Number: US-ARROW-2012-12247

PATIENT
  Age: 63 Year
  Sex: Male

DRUGS (2)
  1. GALANTAMINE HYDROBROMIDE [Suspect]
     Indication: PARKINSON'S DISEASE
     Dosage: UNK
     Route: 065
  2. DONEPEZIL HYDROCHLORIDE [Suspect]
     Indication: PARKINSON'S DISEASE
     Dosage: UNK
     Route: 065

REACTIONS (2)
  - CONDITION AGGRAVATED [None]
  - POST-TRAUMATIC STRESS DISORDER [None]
